FAERS Safety Report 5041712-9 (Version None)
Quarter: 2006Q2

REPORT INFORMATION
  Report Type: 
  Country: None (occurrence: None)
  Receive Date: 20060630
  Receipt Date: 20060621
  Transmission Date: 20061013
  Serious: Yes (Other)
  Sender: FDA-Public Use
  Company Number: 2006079881

PATIENT
  Age: 43 Year
  Sex: Female

DRUGS (7)
  1. LYRICA [Suspect]
     Indication: LUMBAR RADICULOPATHY
     Dosage: 150 MG (75 MG, 2 IN 1 D)
     Dates: start: 20051221
  2. LUNESTA [Concomitant]
  3. OXYCONTIN [Concomitant]
  4. NORCO [Concomitant]
  5. ZANAFLEX [Concomitant]
  6. GABITRIL [Concomitant]
  7. CYMBALTA [Concomitant]

REACTIONS (2)
  - RASH [None]
  - SCAR [None]
